FAERS Safety Report 14187147 (Version 1)
Quarter: 2017Q4

REPORT INFORMATION
  Report Type: Spontaneous
  Country: JP (occurrence: JP)
  Receive Date: 20171114
  Receipt Date: 20171114
  Transmission Date: 20180321
  Serious: Yes (Hospitalization, Other)
  Sender: FDA-Public Use
  Company Number: JP-SUCAMPO PHARMACEUTICALS, INC.-SPI201701408

PATIENT
  Age: 0 Year
  Sex: Female

DRUGS (32)
  1. PULMOZYME [Concomitant]
     Active Substance: DORNASE ALFA
     Indication: CYSTIC FIBROSIS PANCREATIC
     Dosage: UNK
     Route: 055
     Dates: start: 20120807
  2. BIOFERMIN [Concomitant]
     Active Substance: BACILLUS SUBTILIS\LACTOBACILLUS ACIDOPHILUS\STREPTOCOCCUS FAECAIS
     Indication: CYSTIC FIBROSIS PANCREATIC
     Dosage: UNK
     Route: 048
     Dates: start: 20100209
  3. JUVELA [Concomitant]
     Active Substance: .ALPHA.-TOCOPHEROL\RETINOL
     Indication: CYSTIC FIBROSIS PANCREATIC
     Dosage: UNK
     Route: 048
     Dates: start: 20150203, end: 20170605
  4. VITAMEDIN [Concomitant]
     Active Substance: CYANOCOBALAMIN\PYRIDOXINE HYDROCHLORIDE\THIAMINE
     Indication: CYSTIC FIBROSIS PANCREATIC
     Dosage: UNK
     Route: 048
     Dates: start: 20160606
  5. OZEX [Concomitant]
     Active Substance: TOSUFLOXACIN TOSYLATE
     Indication: BRONCHITIS
     Dosage: UNK
     Route: 048
     Dates: start: 29160916, end: 20160920
  6. UNKNOWN [Concomitant]
     Active Substance: UNSPECIFIED INGREDIENT
     Indication: BRONCHITIS
     Dosage: UNK
     Route: 062
     Dates: start: 29160916, end: 20160920
  7. ACELIO [Concomitant]
     Active Substance: ACETAMINOPHEN
     Indication: CYSTIC FIBROSIS PANCREATIC
     Dosage: UNK
     Route: 042
     Dates: start: 20170216, end: 20170217
  8. BAKTAR [Concomitant]
     Active Substance: SULFAMETHOXAZOLE\TRIMETHOPRIM
     Indication: CYSTIC FIBROSIS PANCREATIC
     Dosage: UNK
     Route: 048
     Dates: start: 20170718, end: 20170726
  9. LAC-B GRANULAR POWDER N [Concomitant]
     Indication: CYSTIC FIBROSIS PANCREATIC
     Dosage: UNK
     Route: 048
     Dates: start: 20100209
  10. MUCOSAL [Concomitant]
     Indication: CYSTIC FIBROSIS PANCREATIC
     Dosage: UNK
     Route: 048
     Dates: start: 20160308
  11. JUVELA N [Concomitant]
     Active Substance: TOCOPHERYL NICOTINATE, D-.ALPHA.
     Indication: CYSTIC FIBROSIS PANCREATIC
     Dosage: UNK
     Route: 048
     Dates: start: 20170606
  12. SOLACET D [Concomitant]
     Indication: CYSTIC FIBROSIS PANCREATIC
     Dosage: UNK
     Route: 041
     Dates: start: 20170215, end: 20170215
  13. CEFOTAXIME [Concomitant]
     Active Substance: CEFOTAXIME SODIUM
     Indication: DISTAL INTESTINAL OBSTRUCTION SYNDROME
  14. LIPACREON [Suspect]
     Active Substance: PANCRELIPASE
     Indication: CYSTIC FIBROSIS PANCREATIC
     Dosage: UNK
     Route: 048
     Dates: start: 20160620, end: 20161024
  15. BISOLVON [Concomitant]
     Active Substance: BROMHEXINE HYDROCHLORIDE
     Indication: CYSTIC FIBROSIS PANCREATIC
     Dosage: UNK
     Route: 048
     Dates: start: 20160308
  16. MAGMITT [Concomitant]
     Active Substance: MAGNESIUM OXIDE
     Indication: CYSTIC FIBROSIS PANCREATIC
     Dosage: UNK
     Route: 048
     Dates: start: 20161018, end: 20161219
  17. BAKTAR [Concomitant]
     Active Substance: SULFAMETHOXAZOLE\TRIMETHOPRIM
     Indication: CYSTIC FIBROSIS PANCREATIC
     Dosage: UNK
     Route: 048
     Dates: start: 20161111, end: 20161115
  18. LIPACREON [Suspect]
     Active Substance: PANCRELIPASE
     Indication: CYSTIC FIBROSIS PANCREATIC
     Dosage: UNK
     Route: 048
     Dates: start: 20161025
  19. MIYA-BM [Concomitant]
     Active Substance: CLOSTRIDIUM BUTYRICUM SPORES STRAIN M-55
     Indication: CYSTIC FIBROSIS PANCREATIC
     Dosage: UNK
     Route: 048
     Dates: start: 20100309
  20. PANVITAN [Concomitant]
     Indication: CYSTIC FIBROSIS PANCREATIC
     Dosage: UNK
     Route: 048
     Dates: start: 20150203, end: 20170605
  21. ASVERIN (TIPEPIDINE HIBENZATE) [Concomitant]
     Active Substance: TIPEPIDINE HIBENZATE
     Indication: BRONCHITIS
     Dosage: UNK
     Route: 048
     Dates: start: 20160916, end: 20160920
  22. FOSFOMYCIN SODIUM [Concomitant]
     Active Substance: FOSFOMYCIN SODIUM
     Indication: CYSTIC FIBROSIS PANCREATIC
     Dosage: UNK
     Route: 048
     Dates: start: 20161021, end: 20161025
  23. SOLACET D [Concomitant]
     Indication: DISTAL INTESTINAL OBSTRUCTION SYNDROME
     Dosage: UNK
     Route: 041
     Dates: start: 20170703, end: 20170703
  24. ACETOKEEP 3G [Concomitant]
     Indication: DISTAL INTESTINAL OBSTRUCTION SYNDROME
     Dosage: UNK
     Route: 041
     Dates: start: 20170703, end: 20170706
  25. MEROPENEM. [Concomitant]
     Active Substance: MEROPENEM
     Indication: CYSTIC FIBROSIS PANCREATIC
     Dosage: UNK
     Route: 041
     Dates: start: 20170215, end: 20170220
  26. CEFOTAXIME [Concomitant]
     Active Substance: CEFOTAXIME SODIUM
     Indication: CYSTIC FIBROSIS PANCREATIC
     Dosage: UNK
     Route: 042
     Dates: start: 20170703, end: 20170706
  27. ERYTHROCIN [Concomitant]
     Active Substance: ERYTHROMYCIN LACTOBIONATE
     Indication: CYSTIC FIBROSIS PANCREATIC
     Dosage: UNK
     Route: 048
     Dates: start: 21030309
  28. UNKNOWN [Concomitant]
     Active Substance: UNSPECIFIED INGREDIENT
     Indication: CYSTIC FIBROSIS PANCREATIC
     Dosage: UNK
     Route: 055
     Dates: start: 20160308
  29. MUCODYNE [Concomitant]
     Active Substance: CARBOCYSTEINE
     Indication: CYSTIC FIBROSIS PANCREATIC
     Dosage: UNK
     Route: 048
     Dates: start: 20160308
  30. ACELIO [Concomitant]
     Active Substance: ACETAMINOPHEN
     Dosage: UNK
     Route: 042
     Dates: start: 20170703, end: 20170704
  31. ACETOKEEP 3G [Concomitant]
     Indication: CYSTIC FIBROSIS PANCREATIC
     Dosage: UNK
     Route: 041
     Dates: start: 20170215, end: 20170220
  32. AMITIZA [Suspect]
     Active Substance: LUBIPROSTONE
     Indication: CYSTIC FIBROSIS PANCREATIC
     Dosage: UNK
     Route: 048
     Dates: start: 20161222

REACTIONS (2)
  - Distal intestinal obstruction syndrome [Recovered/Resolved]
  - Distal intestinal obstruction syndrome [Recovered/Resolved]

NARRATIVE: CASE EVENT DATE: 20161018
